FAERS Safety Report 12630380 (Version 3)
Quarter: 2016Q3

REPORT INFORMATION
  Report Type: Report from Study
  Country: JP (occurrence: JP)
  Receive Date: 20160808
  Receipt Date: 20160817
  Transmission Date: 20161109
  Serious: Yes (Other)
  Sender: FDA-Public Use
  Company Number: JP-MSD-1207JPN006167

PATIENT
  Age: 3 Week
  Sex: Male

DRUGS (6)
  1. DIAZOXIDE CAPSULES 25 MG ^MSD^ [Suspect]
     Active Substance: DIAZOXIDE
     Dosage: 6.6 MG, TID
     Route: 048
     Dates: start: 20120803, end: 20120807
  2. DIAZOXIDE CAPSULES 25 MG ^MSD^ [Suspect]
     Active Substance: DIAZOXIDE
     Dosage: 5 MG, TID
     Route: 048
     Dates: start: 20120808, end: 20120820
  3. DIAZOXIDE CAPSULES 25 MG ^MSD^ [Suspect]
     Active Substance: DIAZOXIDE
     Indication: HYPOGLYCAEMIA
     Dosage: 6.6 MG, TID
     Route: 048
     Dates: start: 20120607, end: 20120624
  4. DIAZOXIDE CAPSULES 25 MG ^MSD^ [Suspect]
     Active Substance: DIAZOXIDE
     Dosage: TOTAL DAILY DOSE: 10 MG (3.0 MG IN THE MORNING, 3.0 MG IN THE AFTERNOON AND 4.0 MG IN THE EVENING)
     Route: 048
     Dates: start: 20120821, end: 20120910
  5. DIAZOXIDE CAPSULES 25 MG ^MSD^ [Suspect]
     Active Substance: DIAZOXIDE
     Dosage: 8.33 MG, TID
     Route: 048
     Dates: start: 20120625, end: 20120802
  6. DIAZOXIDE CAPSULES 25 MG ^MSD^ [Suspect]
     Active Substance: DIAZOXIDE
     Dosage: 2.5 MG, BID
     Route: 048
     Dates: start: 20120911, end: 20120924

REACTIONS (2)
  - Cholestasis [Recovered/Resolved]
  - Cholelithiasis [Not Recovered/Not Resolved]

NARRATIVE: CASE EVENT DATE: 20120626
